FAERS Safety Report 13032931 (Version 1)
Quarter: 2016Q4

REPORT INFORMATION
  Report Type: Report from Study
  Country: GB (occurrence: GB)
  Receive Date: 20161215
  Receipt Date: 20161215
  Transmission Date: 20170207
  Serious: Yes (Other)
  Sender: FDA-Public Use
  Company Number: ALCN2016GB008435

PATIENT
  Age: 67 Year
  Sex: Female

DRUGS (13)
  1. DEXAMETHASONE. [Suspect]
     Active Substance: DEXAMETHASONE
     Indication: UVEITIS
     Dosage: REDUCING COURSE
     Route: 047
     Dates: start: 201506
  2. COSOPT [Suspect]
     Active Substance: DORZOLAMIDE HYDROCHLORIDE\TIMOLOL MALEATE
     Indication: UVEITIS
     Dosage: UNK
     Route: 047
     Dates: start: 201506
  3. COSOPT [Suspect]
     Active Substance: DORZOLAMIDE HYDROCHLORIDE\TIMOLOL MALEATE
     Dosage: UNK
     Route: 047
     Dates: start: 201510
  4. DEXAMETHASONE. [Suspect]
     Active Substance: DEXAMETHASONE
     Indication: CYSTOID MACULAR OEDEMA
     Dosage: UNK
     Route: 047
     Dates: start: 201602
  5. DROPODEX [Suspect]
     Active Substance: DEXAMETHASONE SODIUM PHOSPHATE
     Indication: UVEITIS
     Dosage: 1 DF, Q2H
     Route: 047
  6. DROPODEX [Suspect]
     Active Substance: DEXAMETHASONE SODIUM PHOSPHATE
     Dosage: 1 DF, UNK
     Route: 047
     Dates: start: 201510
  7. LUMIGAN [Suspect]
     Active Substance: BIMATOPROST
     Indication: INTRAOCULAR PRESSURE INCREASED
     Dosage: UNK
     Route: 047
     Dates: start: 201510
  8. CYCLOPENTOLATE. [Suspect]
     Active Substance: CYCLOPENTOLATE
     Indication: UVEITIS
     Dosage: UNK
     Route: 047
     Dates: start: 201506
  9. DEXAMETHASONE. [Suspect]
     Active Substance: DEXAMETHASONE
     Indication: EYE INFLAMMATION
     Dosage: LONG REDUCING COURSE
     Route: 047
     Dates: start: 201609
  10. DIAMOX SEQUELS [Suspect]
     Active Substance: ACETAZOLAMIDE
     Indication: INTRAOCULAR PRESSURE INCREASED
     Dosage: 1 DF, BID
     Route: 048
     Dates: start: 201509
  11. IOPIDINE [Suspect]
     Active Substance: APRACLONIDINE HYDROCHLORIDE
     Indication: UVEITIS
     Dosage: UNK
     Route: 047
  12. IOPIDINE [Suspect]
     Active Substance: APRACLONIDINE HYDROCHLORIDE
     Indication: EYE INFLAMMATION
     Dosage: UNK
     Route: 047
     Dates: start: 201510
  13. LUMIGAN [Suspect]
     Active Substance: BIMATOPROST
     Indication: INTRAOCULAR PRESSURE INCREASED
     Dosage: 1 DF, QD
     Route: 047
     Dates: start: 201509

REACTIONS (8)
  - Condition aggravated [Unknown]
  - Eye pain [Unknown]
  - Pigmentary glaucoma [Unknown]
  - Eye inflammation [Unknown]
  - Ocular hyperaemia [Unknown]
  - Cystoid macular oedema [Unknown]
  - Visual acuity reduced [Unknown]
  - Intraocular pressure increased [Unknown]

NARRATIVE: CASE EVENT DATE: 201508
